FAERS Safety Report 9857333 (Version 2)
Quarter: 2014Q1

REPORT INFORMATION
  Report Type: Spontaneous
  Country: CN (occurrence: CN)
  Receive Date: 20140130
  Receipt Date: 20140212
  Transmission Date: 20141002
  Serious: Yes (Hospitalization)
  Sender: FDA-Public Use
  Company Number: CN-ROCHE-1341926

PATIENT
  Age: 80 Year
  Sex: Female

DRUGS (4)
  1. ACTILYSE [Suspect]
     Indication: ISCHAEMIC STROKE
     Dosage: 0.9 MG/KG
     Route: 040
  2. ACTILYSE [Interacting]
     Route: 042
  3. OLMESARTAN [Interacting]
     Indication: HYPERTENSION
     Route: 065
  4. URAPIDIL [Concomitant]
     Indication: HYPERTENSION

REACTIONS (2)
  - Angioedema [Recovered/Resolved]
  - Drug interaction [Unknown]
